FAERS Safety Report 5674813-2 (Version None)
Quarter: 2008Q1

REPORT INFORMATION
  Report Type: 
  Country: None (occurrence: None)
  Receive Date: 20080320
  Receipt Date: 20080311
  Transmission Date: 20080703
  Serious: Yes (Hospitalization, Disabling, Other)
  Sender: FDA-Public Use
  Company Number: FR-PFIZER INC-2007106347

PATIENT
  Sex: Female
  Weight: 76 kg

DRUGS (6)
  1. TAHOR [Suspect]
     Indication: CEREBROVASCULAR ACCIDENT
     Route: 048
     Dates: start: 20070604, end: 20071206
  2. INIPOMP [Concomitant]
     Dosage: DAILY DOSE:40MG-FREQ:DAILY
     Route: 048
     Dates: start: 20070604, end: 20071206
  3. ASPEGIC 1000 [Concomitant]
     Dosage: DAILY DOSE:75MG-FREQ:DAILY
     Route: 048
  4. XANAX [Concomitant]
     Dosage: DAILY DOSE:.5MG-FREQ:2X DAILY
     Route: 048
  5. SEROPRAM [Concomitant]
     Dosage: DAILY DOSE:20MG-FREQ:3X DAILY
     Route: 048
  6. HEPTAMINOL HYDROCHLORIDE [Concomitant]
     Dosage: TEXT:3 TABLETS-FREQ:3X DAILY
     Route: 048
     Dates: end: 20071206

REACTIONS (5)
  - BLOOD CREATINE PHOSPHOKINASE INCREASED [None]
  - CYTOLYTIC HEPATITIS [None]
  - LIVER DISORDER [None]
  - RHABDOMYOLYSIS [None]
  - TRANSAMINASES INCREASED [None]
